FAERS Safety Report 8073225-4 (Version None)
Quarter: 2012Q1

REPORT INFORMATION
  Report Type: 
  Country: None (occurrence: None)
  Receive Date: 20120126
  Receipt Date: 20120118
  Transmission Date: 20120608
  Serious: Yes (Hospitalization)
  Sender: FDA-Public Use
  Company Number: PHHY2012AU004698

PATIENT
  Sex: Female

DRUGS (1)
  1. CLOZARIL [Suspect]
     Dates: start: 20000120, end: 20110301

REACTIONS (2)
  - MENTAL IMPAIRMENT [None]
  - PSYCHOTIC DISORDER [None]
